FAERS Safety Report 24104248 (Version 3)
Quarter: 2025Q2

REPORT INFORMATION
  Report Type: Report from Study
  Country: JP (occurrence: JP)
  Receive Date: 20240717
  Receipt Date: 20250524
  Transmission Date: 20250717
  Serious: Yes (Death, Other)
  Sender: ROCHE
  Company Number: JP-CHUGAI-2024023591

PATIENT
  Age: 9 Decade
  Sex: Male
  Weight: 56.4 kg

DRUGS (4)
  1. VABYSMO [Suspect]
     Active Substance: FARICIMAB-SVOA
     Indication: Neovascular age-related macular degeneration
     Route: 031
     Dates: start: 20220713
  2. PHENYLEPHRINE HYDROCHLORIDE\TROPICAMIDE [Concomitant]
     Active Substance: PHENYLEPHRINE HYDROCHLORIDE\TROPICAMIDE
     Indication: Neovascular age-related macular degeneration
     Route: 047
     Dates: start: 20240405, end: 20240405
  3. OFLOXACIN [Concomitant]
     Active Substance: OFLOXACIN
     Indication: Neovascular age-related macular degeneration
     Route: 047
     Dates: start: 20240405, end: 20240405
  4. BENOXINATE HYDROCHLORIDE [Concomitant]
     Active Substance: BENOXINATE HYDROCHLORIDE
     Indication: Neovascular age-related macular degeneration
     Route: 047
     Dates: start: 20240405, end: 20240405

REACTIONS (3)
  - Aortic aneurysm rupture [Fatal]
  - Intermittent claudication [Not Recovered/Not Resolved]
  - Headache [Unknown]

NARRATIVE: CASE EVENT DATE: 20230817
